FAERS Safety Report 6648502-1 (Version None)
Quarter: 2010Q1

REPORT INFORMATION
  Report Type: 
  Country: None (occurrence: None)
  Receive Date: 20100319
  Receipt Date: 20100311
  Transmission Date: 20100710
  Serious: Yes (Other)
  Sender: FDA-Public Use
  Company Number: SPV1-2010-00472

PATIENT
  Age: 8 Year
  Sex: Female
  Weight: 22.7 kg

DRUGS (4)
  1. INTUNIV [Suspect]
     Indication: AGGRESSION
     Dosage: 1 MG, 1X/DAY:QD, ORAL, 2MG, 1X/DAY;,QD, ORAL
     Route: 048
     Dates: start: 20100201, end: 20100309
  2. INTUNIV [Suspect]
     Indication: ANGER
     Dosage: 1 MG, 1X/DAY:QD, ORAL, 2MG, 1X/DAY;,QD, ORAL
     Route: 048
     Dates: start: 20100201, end: 20100309
  3. INTUNIV [Suspect]
     Indication: AGGRESSION
     Dosage: 1 MG, 1X/DAY:QD, ORAL, 2MG, 1X/DAY;,QD, ORAL
     Route: 048
     Dates: start: 20100310
  4. INTUNIV [Suspect]
     Indication: ANGER
     Dosage: 1 MG, 1X/DAY:QD, ORAL, 2MG, 1X/DAY;,QD, ORAL
     Route: 048
     Dates: start: 20100310

REACTIONS (3)
  - HOMICIDAL IDEATION [None]
  - OFF LABEL USE [None]
  - SUICIDAL IDEATION [None]
